FAERS Safety Report 24388780 (Version 1)
Quarter: 2024Q4

REPORT INFORMATION
  Report Type: Spontaneous
  Country: US (occurrence: None)
  Receive Date: 20241002
  Receipt Date: 20241002
  Transmission Date: 20250115
  Serious: Yes (Other)
  Sender: Public
  Company Number: None

PATIENT
  Sex: Female

DRUGS (1)
  1. ZEPBOUND [Suspect]
     Active Substance: TIRZEPATIDE
     Indication: Weight decreased
     Dosage: OTHER QUANTITY : 2 INJECTION(S);?OTHER ROUTE : INJECTED;?
     Route: 050

REACTIONS (3)
  - Alopecia [None]
  - Weight decreased [None]
  - Dysphonia [None]

NARRATIVE: CASE EVENT DATE: 20240927
